FAERS Safety Report 20597020 (Version 1)
Quarter: 2022Q1

REPORT INFORMATION
  Report Type: Spontaneous
  Country: US (occurrence: None)
  Receive Date: 20220315
  Receipt Date: 20220315
  Transmission Date: 20220423
  Serious: No
  Sender: FDA-Public Use
  Company Number: US-ROCHE-2797712

PATIENT
  Age: 50 Year
  Sex: Female
  Weight: 131.66 kg

DRUGS (6)
  1. XOLAIR [Suspect]
     Active Substance: OMALIZUMAB
     Indication: Urticaria
     Dosage: 2 SHOTS PER DOSE
     Route: 065
     Dates: start: 20210309
  2. ZYRTEC [Concomitant]
     Active Substance: CETIRIZINE HYDROCHLORIDE
     Indication: Nasal congestion
     Dosage: 2 PILLS PER DOSE ;ONGOING: NO
     Route: 048
     Dates: end: 20210309
  3. ZYRTEC [Concomitant]
     Active Substance: CETIRIZINE HYDROCHLORIDE
     Indication: Hypersensitivity
     Dosage: ONE PILL PER DOSE
     Route: 048
     Dates: start: 20210311
  4. SINGULAIR [Concomitant]
     Active Substance: MONTELUKAST SODIUM
     Dosage: YES
     Route: 048
  5. BENADRYL [Concomitant]
     Active Substance: DIPHENHYDRAMINE HYDROCHLORIDE
     Indication: Pruritus
     Dosage: ONE TO TWO TABLETS PER DOSE A DAY ;ONGOING: NO
     Route: 048
     Dates: start: 202012, end: 20210309
  6. BENADRYL [Concomitant]
     Active Substance: DIPHENHYDRAMINE HYDROCHLORIDE
     Indication: Urticaria
     Dosage: AS NEEDED
     Route: 048
     Dates: start: 202103

REACTIONS (4)
  - Swelling [Recovered/Resolved]
  - Dysphonia [Recovered/Resolved]
  - Blood pressure increased [Unknown]
  - Anxiety [Recovered/Resolved]

NARRATIVE: CASE EVENT DATE: 20210310
